FAERS Safety Report 22018122 (Version 1)
Quarter: 2023Q1

REPORT INFORMATION
  Report Type: Report from Study
  Country: US (occurrence: US)
  Receive Date: 20230221
  Receipt Date: 20230221
  Transmission Date: 20230418
  Serious: Yes (Hospitalization, Other)
  Sender: FDA-Public Use
  Company Number: US-BAUSCH-BL-2023-002994

PATIENT
  Age: 56 Year
  Sex: Female
  Weight: 98.972 kg

DRUGS (24)
  1. XIFAXAN [Suspect]
     Active Substance: RIFAXIMIN
     Indication: Product used for unknown indication
     Dosage: TAKE 1 TABLET BY MOUTH TWICE A DAY
     Route: 048
     Dates: start: 20211111
  2. LACTULOSE [Suspect]
     Active Substance: LACTULOSE
     Indication: Product used for unknown indication
     Dosage: 10GM/15ML, TAKEN 30 ML BY MOUTH TWICE A DAY
     Route: 048
     Dates: start: 20220407
  3. LACTULOSE [Suspect]
     Active Substance: LACTULOSE
     Dosage: 10GM/15ML, INCREASED DOSE
     Route: 048
  4. BENZONATATE [Concomitant]
     Active Substance: BENZONATATE
     Indication: Product used for unknown indication
     Dosage: TAKE CAPSULE BY MOUTH AS DIRECTED
     Route: 048
     Dates: start: 20221031
  5. CITALOPRAM [Concomitant]
     Active Substance: CITALOPRAM HYDROBROMIDE
     Indication: Product used for unknown indication
     Dosage: 1 TABLET BY MOUTH ONE A DAY
     Route: 048
     Dates: start: 20200326
  6. CYCLOBENZAPRINE [Concomitant]
     Active Substance: CYCLOBENZAPRINE
     Indication: Product used for unknown indication
     Dosage: TAKE 1 TABLET BY MOUTH EVERY NIGHT
     Route: 048
     Dates: start: 20221031
  7. DEXTROMETHORPHAN\GUAIFENESIN [Concomitant]
     Active Substance: DEXTROMETHORPHAN\GUAIFENESIN
     Indication: Product used for unknown indication
     Dosage: 10-100 MG/5 ML
  8. FLUTICASONE [Concomitant]
     Active Substance: FLUTICASONE
     Indication: Product used for unknown indication
     Dosage: SUSPENSION SPRAY 50 MCG/ACTUATION, 1 SPRAY INTO BOTH NOSTRILS A TWICE A DAY
     Route: 045
     Dates: start: 20160310
  9. FUROSEMIDE [Concomitant]
     Active Substance: FUROSEMIDE
     Indication: Product used for unknown indication
     Dosage: TAKE 1 TABLET BY MOUTH ONE A DAY
     Route: 048
     Dates: start: 20230117
  10. GABAPENTIN [Concomitant]
     Active Substance: GABAPENTIN
     Indication: Product used for unknown indication
     Dosage: TAKE 1 CAPSULE BY MOUTH ONCE A DAY
     Route: 048
     Dates: start: 20210318
  11. KETOCONAZOLE [Concomitant]
     Active Substance: KETOCONAZOLE
     Indication: Product used for unknown indication
     Dosage: APPLY AS NEEDED
     Dates: start: 20221031
  12. LEVETIRACETAM [Concomitant]
     Active Substance: LEVETIRACETAM
     Indication: Product used for unknown indication
     Dosage: TAKE 1 TABLET BY MOUTH TWICE A DAY
     Route: 048
     Dates: start: 20221031
  13. LORAZEPAM [Concomitant]
     Active Substance: LORAZEPAM
     Indication: Product used for unknown indication
     Dosage: TAKE 1 TABLET BY MOUTH AS NEEDED
     Route: 048
     Dates: start: 20200326
  14. METFORMIN [Concomitant]
     Active Substance: METFORMIN HYDROCHLORIDE
     Indication: Product used for unknown indication
     Dosage: TAKE 1 TABLET BY MOUTH ONCE A DAY
     Route: 048
     Dates: start: 20160310
  15. METHYLPHENIDATE HYDROCHLORIDE [Concomitant]
     Active Substance: METHYLPHENIDATE HYDROCHLORIDE
     Indication: Product used for unknown indication
     Dosage: TAKE 1 TABLET BY MOUTH AS DIRECTED
     Route: 048
     Dates: start: 20221031
  16. MIRTAZAPINE [Concomitant]
     Active Substance: MIRTAZAPINE
     Indication: Product used for unknown indication
     Dosage: TAKE 1 TABLET BY MOUTH AS DIRECTED
     Route: 048
     Dates: start: 20221031
  17. NADOLOL [Concomitant]
     Active Substance: NADOLOL
     Indication: Product used for unknown indication
     Dosage: TAKE 1 TABLET EVERYDAY
     Route: 048
     Dates: start: 20200326
  18. ONDANSETRON [Concomitant]
     Active Substance: ONDANSETRON
     Indication: Nausea
     Dosage: TABLET, DIS-INTERGRATING, TAKE 1 TABLET BY MOUTH 3 TIMES A DAY
     Route: 048
     Dates: start: 20210128
  19. PANTOPRAZOLE [Concomitant]
     Active Substance: PANTOPRAZOLE
     Indication: Product used for unknown indication
     Dosage: TAKE 1 TABLET BY MOUTH ONCE A DAY
     Route: 048
     Dates: start: 20210217
  20. SIMVASTATIN [Concomitant]
     Active Substance: SIMVASTATIN
     Indication: Product used for unknown indication
     Dosage: 1 TABLET BY MOUTH AT BED TIME
     Route: 048
     Dates: start: 20200326
  21. SPIRONOLACTONE [Concomitant]
     Active Substance: SPIRONOLACTONE
     Indication: Product used for unknown indication
     Dosage: TAKE 2 TABLET BY MOUTH ONCE A DAY FOR 30 DAYS
     Route: 048
     Dates: start: 20230117
  22. TOPIRAMATE [Concomitant]
     Active Substance: TOPIRAMATE
     Indication: Product used for unknown indication
     Dosage: TAKE 1 TABLET BY MOUTH AS DIRECTED
     Route: 048
     Dates: start: 20221031
  23. TRAZODONE [Concomitant]
     Active Substance: TRAZODONE HYDROCHLORIDE
     Indication: Sleep disorder
     Dosage: TAKE 1 TABLET BY MOUTH AT BEDTIME FOR SLEEP
     Route: 048
     Dates: start: 20200326
  24. TYLENOL EXTRA STRENGTH [Concomitant]
     Active Substance: ACETAMINOPHEN
     Indication: Product used for unknown indication
     Dosage: TAKE 1 TABLET BY MOUTH ONCE A DAY AS NEEDED
     Route: 048
     Dates: start: 20200326

REACTIONS (24)
  - Confusional state [Unknown]
  - Hepatic cirrhosis [Unknown]
  - Condition aggravated [Unknown]
  - Ascites [Unknown]
  - Thirst [Unknown]
  - Alopecia [Unknown]
  - Temperature intolerance [Unknown]
  - Urinary tract infection [Unknown]
  - Dry skin [Unknown]
  - Haemoptysis [Unknown]
  - Illness [Unknown]
  - Weight decreased [Unknown]
  - Orthopnoea [Unknown]
  - Palpitations [Unknown]
  - Oedema peripheral [Unknown]
  - Defaecation urgency [Unknown]
  - Pruritus [Unknown]
  - Arthralgia [Unknown]
  - Vomiting [Unknown]
  - Dizziness [Unknown]
  - Abdominal pain [Unknown]
  - Abdominal distension [Unknown]
  - Frequent bowel movements [Unknown]
  - Therapy interrupted [Unknown]

NARRATIVE: CASE EVENT DATE: 20221201
